FAERS Safety Report 9593014 (Version 1)
Quarter: 2013Q4

REPORT INFORMATION
  Report Type: Spontaneous
  Country: DE (occurrence: DE)
  Receive Date: 20131004
  Receipt Date: 20131004
  Transmission Date: 20140711
  Serious: Yes (Death)
  Sender: FDA-Public Use
  Company Number: DE-OTSUKA-US-2013-11824

PATIENT
  Age: 10 Year
  Sex: Female

DRUGS (3)
  1. BUSULFEX [Suspect]
     Indication: STEM CELL TRANSPLANT
     Dosage: UNK
  2. MELPHALAN [Concomitant]
     Indication: STEM CELL TRANSPLANT
     Dosage: UNK
  3. CYCLOPHOSPHAMIDE [Concomitant]
     Indication: STEM CELL TRANSPLANT
     Dosage: UNK

REACTIONS (2)
  - Metapneumovirus infection [Fatal]
  - Lung disorder [Fatal]
